FAERS Safety Report 6699202-3 (Version None)
Quarter: 2010Q2

REPORT INFORMATION
  Report Type: 
  Country: None (occurrence: None)
  Receive Date: 20100427
  Receipt Date: 20100421
  Transmission Date: 20101027
  Serious: Yes (Life-Threatening, Hospitalization)
  Sender: FDA-Public Use
  Company Number: FR-WYE-G05994710

PATIENT
  Sex: Female

DRUGS (4)
  1. RHINADVIL [Suspect]
     Dosage: IN LARGE AMOUNTS.
     Route: 048
     Dates: start: 20100201
  2. EUPHYTOSE [Suspect]
     Dosage: IN LARGE AMOUNTS
     Route: 048
     Dates: start: 20100201, end: 20100201
  3. ALLI [Suspect]
     Dosage: IN LARGE AMOUNTS
     Route: 048
     Dates: start: 20100201, end: 20100201
  4. IBUPROFEN TABLETS [Suspect]
     Dosage: IN LARGE AMOUNTS.
     Route: 048
     Dates: start: 20100201, end: 20100201

REACTIONS (2)
  - HEPATITIS FULMINANT [None]
  - OVERDOSE [None]
